FAERS Safety Report 21128819 (Version 6)
Quarter: 2022Q4

REPORT INFORMATION
  Report Type: Report from Study
  Country: US (occurrence: US)
  Receive Date: 20220725
  Receipt Date: 20221107
  Transmission Date: 20230112
  Serious: Yes (Other)
  Sender: FDA-Public Use
  Company Number: US-INCYTE CORPORATION-2022IN005968

PATIENT

DRUGS (7)
  1. JAKAFI [Suspect]
     Active Substance: RUXOLITINIB
     Indication: Myelofibrosis
     Dosage: 10 MILLIGRAM, BID, TWO 5MG TABLETS TWICE A DAY (A TOTAL OF 10MG IN THE MORNING AND 10MG IN THE EVENI
     Route: 065
  2. JAKAFI [Suspect]
     Active Substance: RUXOLITINIB
     Dosage: 10 MILLIGRAM, BID (TWO 5MG (A TOTAL OF 10MG QAM AND 10MG QPM))
     Route: 048
  3. JAKAFI [Suspect]
     Active Substance: RUXOLITINIB
     Dosage: 10 MILLIGRAM, BID
     Route: 065
     Dates: start: 20220525
  4. JAKAFI [Suspect]
     Active Substance: RUXOLITINIB
     Dosage: 10 MILLIGRAM, BID
     Route: 048
     Dates: start: 202206
  5. JAKAFI [Suspect]
     Active Substance: RUXOLITINIB
     Dosage: 10 MILLIGRAM, BID
     Route: 048
  6. ASPIRIN [Suspect]
     Active Substance: ASPIRIN
     Indication: Musculoskeletal disorder
     Route: 065
  7. METHYL B COMPLEX [Concomitant]
     Indication: Asthenia
     Route: 065

REACTIONS (25)
  - Gastric ulcer haemorrhage [Unknown]
  - Abdominal pain upper [Unknown]
  - COVID-19 [Unknown]
  - Muscular weakness [Unknown]
  - Arthralgia [Recovered/Resolved]
  - Musculoskeletal disorder [Unknown]
  - Pulmonary pain [Unknown]
  - Gait disturbance [Unknown]
  - Musculoskeletal discomfort [Unknown]
  - Weight decreased [Unknown]
  - Musculoskeletal chest pain [Unknown]
  - Inflammation [Unknown]
  - Productive cough [Unknown]
  - Poor quality sleep [Unknown]
  - Faeces discoloured [Unknown]
  - Pyrexia [Unknown]
  - Hypophagia [Unknown]
  - White blood cell count decreased [Unknown]
  - Abnormal loss of weight [Unknown]
  - Product dose omission issue [Unknown]
  - Intentional dose omission [Unknown]
  - Diarrhoea [Unknown]
  - Dizziness [Unknown]
  - Red blood cell count decreased [Unknown]
  - Haemoglobin decreased [Unknown]

NARRATIVE: CASE EVENT DATE: 20220101
